FAERS Safety Report 25667816 (Version 1)
Quarter: 2025Q3

REPORT INFORMATION
  Report Type: Spontaneous
  Country: EU (occurrence: EU)
  Receive Date: 20250812
  Receipt Date: 20250812
  Transmission Date: 20251020
  Serious: Yes (Hospitalization)
  Sender: TEVA
  Company Number: None

PATIENT
  Age: 54 Year
  Sex: Male
  Weight: 80 kg

DRUGS (8)
  1. PACLITAXEL [Suspect]
     Active Substance: PACLITAXEL
     Indication: Testicular seminoma (pure) stage III
     Dosage: TIP PROTOCOL (TAXOL, IFOSFAMIDE, CISPLATIN)?PACLITAXEL 388 MG ADMINISTERED ON DAY 1 OF THE PROTOCOL.
     Route: 042
     Dates: start: 20250422, end: 20250422
  2. IFOSFAMIDE [Suspect]
     Active Substance: IFOSFAMIDE
     Indication: Testicular seminoma (pure) stage III
     Dosage: TIP PROTOCOL (TAXOL, IFOSFAMIDE, CISPLATIN)?IFOSFAMIDE 2328 MG ADMINISTERED ON DAYS 2, 3, 4, AND ...
     Route: 042
     Dates: start: 20250423, end: 20250426
  3. DEXAMETHASONE [Concomitant]
     Active Substance: DEXAMETHASONE
     Indication: Chemotherapy side effect prophylaxis
     Route: 042
     Dates: start: 20250422, end: 20250426
  4. TRIMETON [Concomitant]
     Active Substance: CHLORPHENIRAMINE MALEATE
     Indication: Chemotherapy side effect prophylaxis
     Route: 042
     Dates: start: 20250422, end: 20250426
  5. ONDANSETRON [Concomitant]
     Active Substance: ONDANSETRON
     Indication: Chemotherapy side effect prophylaxis
     Route: 042
     Dates: start: 20250422, end: 20250426
  6. PANTOPRAZOLE SODIUM [Concomitant]
     Active Substance: PANTOPRAZOLE SODIUM
     Indication: Chemotherapy side effect prophylaxis
     Route: 042
     Dates: start: 20250422, end: 20250426
  7. MESNA [Concomitant]
     Active Substance: MESNA
     Indication: Testicular seminoma (pure) stage III
     Route: 042
     Dates: start: 20250423, end: 20250426
  8. MIRTAZAPINE [Concomitant]
     Active Substance: MIRTAZAPINE
     Indication: Product used for unknown indication
     Route: 048

REACTIONS (1)
  - Febrile neutropenia [Recovered/Resolved]

NARRATIVE: CASE EVENT DATE: 20250430
